FAERS Safety Report 10191851 (Version 1)
Quarter: 2014Q2

REPORT INFORMATION
  Report Type: Spontaneous
  Country: US (occurrence: None)
  Receive Date: 20140522
  Receipt Date: 20140522
  Transmission Date: 20141212
  Serious: Yes (Other)
  Sender: FDA-Public Use
  Company Number: None

PATIENT
  Sex: Male
  Weight: 82 kg

DRUGS (2)
  1. K-Y TOUCH MASSAGE [Suspect]
     Indication: INADEQUATE LUBRICATION
     Dosage: HANDFUL, A COUPLE/WEEK, TOP
     Route: 061
     Dates: start: 2013, end: 2014
  2. K-Y TOUCH MASSAGE [Suspect]
     Indication: INADEQUATE LUBRICATION
     Dosage: HANDFUL, A COUPLE/WEEK, TOP
     Route: 061
     Dates: start: 2013, end: 2014

REACTIONS (5)
  - Testicular pain [None]
  - Abdominal pain [None]
  - Bacterial infection [None]
  - Penile ulceration [None]
  - Ulcer [None]
